FAERS Safety Report 9738016 (Version 2)
Quarter: 2013Q4

REPORT INFORMATION
  Report Type: Spontaneous
  Country: US (occurrence: US)
  Receive Date: 20131208
  Receipt Date: 20131208
  Transmission Date: 20140711
  Serious: No
  Sender: FDA-Public Use
  Company Number: -SAAVPROD-RENA-1001978

PATIENT
  Age: 68 Year
  Sex: Male
  Weight: 55 kg

DRUGS (1)
  1. SEVELAMER CARBONATE [Suspect]
     Indication: HYPERPHOSPHATAEMIA
     Dosage: 0.8 G, UNK, (UP TO 22 TABLETS/DAY)
     Route: 048
     Dates: start: 20130807

REACTIONS (2)
  - Hyperphosphataemia [Unknown]
  - Overdose [Unknown]
